FAERS Safety Report 25860445 (Version 4)
Quarter: 2025Q4

REPORT INFORMATION
  Report Type: Report from Study
  Country: None (occurrence: BR)
  Receive Date: 20250929
  Receipt Date: 20251124
  Transmission Date: 20260118
  Serious: Yes (Life-Threatening, Other)
  Sender: ALNYLAM PHARMACEUTICALS
  Company Number: BR-ALNYLAM PHARMACEUTICALS, INC.-ALN-2025-005473

PATIENT
  Age: 76 Year
  Weight: 55 kg

DRUGS (1)
  1. ONPATTRO [Suspect]
     Active Substance: PATISIRAN SODIUM
     Indication: Hereditary neuropathic amyloidosis
     Dosage: 0.3 MILLIGRAM/KILOGRAM, Q3W

REACTIONS (14)
  - Unevaluable event [Unknown]
  - Pneumonia [Unknown]
  - Blood glucose increased [Unknown]
  - Inappropriate schedule of product administration [Unknown]
  - Emotional disorder [Unknown]
  - Diarrhoea [Unknown]
  - Phlebitis [Unknown]
  - Infusion site extravasation [Unknown]
  - Incorrect dose administered [Unknown]
  - Blood glucose decreased [Unknown]
  - General physical health deterioration [Unknown]
  - Intercepted product administration error [Unknown]
  - Hyperglycaemia [Unknown]
  - Product expiration date issue [Unknown]
